FAERS Safety Report 12295052 (Version 1)
Quarter: 2016Q2

REPORT INFORMATION
  Report Type: Spontaneous
  Country: US (occurrence: None)
  Receive Date: 20160421
  Receipt Date: 20160421
  Transmission Date: 20160815
  Serious: Yes (Hospitalization)
  Sender: FDA-Public Use
  Company Number: None

PATIENT
  Age: 57 Year
  Sex: Male
  Weight: 55 kg

DRUGS (1)
  1. CISPLATIN. [Suspect]
     Active Substance: CISPLATIN
     Dates: end: 20160328

REACTIONS (8)
  - Dehydration [None]
  - Skin wound [None]
  - Streptococcal bacteraemia [None]
  - Pharyngitis [None]
  - Malnutrition [None]
  - Pharyngitis streptococcal [None]
  - Acute kidney injury [None]
  - Candida infection [None]

NARRATIVE: CASE EVENT DATE: 20160409
